FAERS Safety Report 18237584 (Version 3)
Quarter: 2020Q3

REPORT INFORMATION
  Report Type: Report from Study
  Country: US (occurrence: US)
  Receive Date: 20200907
  Receipt Date: 20200922
  Transmission Date: 20201103
  Serious: Yes (Life-Threatening, Hospitalization)
  Sender: FDA-Public Use
  Company Number: US-PFIZER INC-2020339572

PATIENT
  Age: 67 Year
  Sex: Female
  Weight: 47.4 kg

DRUGS (25)
  1. INOTUZUMAB OZOGAMICIN [Suspect]
     Active Substance: INOTUZUMAB OZOGAMICIN
     Indication: B-CELL TYPE ACUTE LEUKAEMIA
     Dosage: 0.3 MG/M2, DAY 8 AND 15 Q28 DAYS
     Route: 042
     Dates: start: 20200825, end: 20200825
  2. INSULIN GLARGINE [Concomitant]
     Active Substance: INSULIN GLARGINE
     Dosage: 12 UNITS, QHS
     Route: 058
  3. MAGNESIUM OXIDE. [Concomitant]
     Active Substance: MAGNESIUM OXIDE
     Dosage: 400 MG, BID (241.3 MG ELEMENTAL MAGNESIUM
     Route: 048
  4. PROCHLORPERAZINE. [Concomitant]
     Active Substance: PROCHLORPERAZINE
     Indication: NAUSEA
     Dosage: 1 OR 2 TABLET(S) PO Q6 HOUR PRN
     Route: 048
  5. PROCHLORPERAZINE. [Concomitant]
     Active Substance: PROCHLORPERAZINE
     Indication: VOMITING
  6. CYCLOPHOSPHAMIDE. [Suspect]
     Active Substance: CYCLOPHOSPHAMIDE
     Indication: B-CELL TYPE ACUTE LEUKAEMIA
     Dosage: 750 MG/M2, DAY 5 Q28 DAYS
     Route: 042
     Dates: start: 20200821, end: 20200821
  7. LEVOFLOXACIN. [Concomitant]
     Active Substance: LEVOFLOXACIN
     Dosage: 750 MG, Q48 HOURS
     Route: 048
  8. METFORMIN [Concomitant]
     Active Substance: METFORMIN HYDROCHLORIDE
     Dosage: 1000 MG, BID
     Route: 048
  9. AMLODIPINE [Concomitant]
     Active Substance: AMLODIPINE BESYLATE
     Dosage: 10 MG, DAILY
     Route: 048
  10. LOSARTAN. [Concomitant]
     Active Substance: LOSARTAN
     Dosage: 50 MG, Q12 HOURS
     Route: 048
  11. ONDANSETRON [Concomitant]
     Active Substance: ONDANSETRON
     Indication: NAUSEA
     Dosage: 4 MG, Q8 HOURS PRN
     Route: 048
  12. ETOPOSIDE. [Suspect]
     Active Substance: ETOPOSIDE
     Indication: B-CELL TYPE ACUTE LEUKAEMIA
     Dosage: 50 MG/M2/DAY, DAYS 1?4 Q28 DAYS, CIV
     Dates: start: 20200817, end: 20200820
  13. FLUCONAZOLE. [Concomitant]
     Active Substance: FLUCONAZOLE
     Dosage: 200 MG, DAILY
     Route: 048
  14. PREDNISONE. [Suspect]
     Active Substance: PREDNISONE
     Dosage: 60 MG/M2, DAYS 1?5 Q28 DAYS
     Route: 048
     Dates: start: 20200817, end: 20200822
  15. INSULIN LISPRO [Concomitant]
     Active Substance: INSULIN LISPRO
     Dosage: DOSE: SEE INSTRUCTIONS. INJECT UNDER THE SKIN 4?6 UNITS BEFORE BREAKFAST AND DINNER
  16. VINCRISTINE SULFATE. [Suspect]
     Active Substance: VINCRISTINE SULFATE
     Indication: B-CELL TYPE ACUTE LEUKAEMIA
     Dosage: 0.4 MG/M2/DAY, DAYS 1?4 Q28 DAYS, CIV
     Dates: start: 20200817, end: 20200820
  17. DOXORUBICIN HCL [Suspect]
     Active Substance: DOXORUBICIN HYDROCHLORIDE
     Indication: B-CELL TYPE ACUTE LEUKAEMIA
     Dosage: 10 MG/M2/DAY, DAYS 1?4 Q28 DAYS, CIV
     Dates: start: 20200817, end: 20200820
  18. PEGFILGRASTIM [Suspect]
     Active Substance: PEGFILGRASTIM
     Dosage: DAY 7
     Route: 058
     Dates: start: 20200823, end: 20200823
  19. TRAZODONE [Concomitant]
     Active Substance: TRAZODONE HYDROCHLORIDE
     Indication: SLEEP DISORDER
     Dosage: 0.5 OR 1 TAB PO QHS PRN
     Route: 048
  20. METOPROLOL SUCCINATE. [Concomitant]
     Active Substance: METOPROLOL SUCCINATE
     Dosage: 50 MG, Q12 HOURS
     Route: 048
  21. SULFAMETHOXAZOLE/TRIMETHOPRIM [Concomitant]
     Active Substance: SULFAMETHOXAZOLE\TRIMETHOPRIM
     Dosage: 1 TAB BID ON QMTU
     Route: 048
  22. ONDANSETRON [Concomitant]
     Active Substance: ONDANSETRON
     Indication: VOMITING
  23. URSODIOL. [Concomitant]
     Active Substance: URSODIOL
     Dosage: 250 MG, BID
     Route: 048
  24. VALACYCLOVIR [Concomitant]
     Active Substance: VALACYCLOVIR HYDROCHLORIDE
     Dosage: 500 MG, Q12 HOURS FOR 90 DAY(S)
     Route: 048
  25. PANTOPRAZOLE [Concomitant]
     Active Substance: PANTOPRAZOLE
     Indication: DYSPEPSIA
     Dosage: 40 MG, BID PRN
     Route: 048

REACTIONS (1)
  - Sepsis [Recovering/Resolving]

NARRATIVE: CASE EVENT DATE: 20200831
